FAERS Safety Report 17288571 (Version 7)
Quarter: 2020Q1

REPORT INFORMATION
  Report Type: Report from Study
  Country: CA (occurrence: CA)
  Receive Date: 20200120
  Receipt Date: 20200327
  Transmission Date: 20200409
  Serious: Yes (Hospitalization, Other)
  Sender: FDA-Public Use
  Company Number: CA-GLAXOSMITHKLINE-CA2020AMR008026

PATIENT
  Sex: Male

DRUGS (2)
  1. MEPOLIZUMAB [Suspect]
     Active Substance: MEPOLIZUMAB
     Indication: ASTHMA
     Dosage: 100 MG, Z, MONTHLY
     Route: 042
     Dates: start: 20181019
  2. VENTOLIN [Suspect]
     Active Substance: ALBUTEROL SULFATE
     Indication: PRODUCT USED FOR UNKNOWN INDICATION
     Dosage: UNK

REACTIONS (20)
  - Sputum discoloured [Recovering/Resolving]
  - Influenza [Recovering/Resolving]
  - Pneumonia [Not Recovered/Not Resolved]
  - Asthma [Recovering/Resolving]
  - Rib fracture [Unknown]
  - Skin lesion [Unknown]
  - Renal failure [Unknown]
  - Chronic obstructive pulmonary disease [Unknown]
  - Fatigue [Unknown]
  - Skin infection [Unknown]
  - Blood pressure decreased [Recovering/Resolving]
  - Dyspnoea [Unknown]
  - Disease recurrence [Unknown]
  - Cough [Unknown]
  - Dehydration [Recovering/Resolving]
  - Limb discomfort [Recovering/Resolving]
  - Loss of personal independence in daily activities [Unknown]
  - Cutaneous lymphoma [Unknown]
  - Renal disorder [Unknown]
  - Wheezing [Unknown]
